FAERS Safety Report 20689033 (Version 1)
Quarter: 2022Q2

REPORT INFORMATION
  Report Type: Spontaneous
  Country: US (occurrence: US)
  Receive Date: 20220408
  Receipt Date: 20220408
  Transmission Date: 20220721
  Serious: No
  Sender: FDA-Public Use
  Company Number: US-FERRINGPH-2021FE02925

PATIENT
  Sex: Male

DRUGS (7)
  1. FIRMAGON [Suspect]
     Active Substance: DEGARELIX ACETATE
     Indication: Prostate cancer
     Dosage: UNK
     Route: 065
  2. FIRMAGON [Suspect]
     Active Substance: DEGARELIX ACETATE
     Dosage: UNK
     Route: 065
  3. LYRICA CR [Concomitant]
     Active Substance: PREGABALIN
     Indication: Neuralgia
     Dosage: 200 MG, 3 TIMES DAILY
     Route: 065
  4. ATIVAN [Concomitant]
     Active Substance: LORAZEPAM
     Indication: Neuralgia
     Dosage: .5 MG, AS NEEDED
     Route: 065
  5. CANNABIS SATIVA SUBSP. INDICA TOP [Concomitant]
     Active Substance: CANNABIS SATIVA SUBSP. INDICA TOP
     Indication: Neuralgia
     Dosage: UNK
     Route: 065
  6. CANNABIS SATIVA SUBSP. INDICA TOP [Concomitant]
     Active Substance: CANNABIS SATIVA SUBSP. INDICA TOP
     Indication: Neuralgia
     Dosage: UNK
     Route: 065
  7. ZOLOFT [Concomitant]
     Active Substance: SERTRALINE HYDROCHLORIDE
     Indication: Product used for unknown indication
     Dosage: UNK
     Route: 065

REACTIONS (6)
  - Abdominal distension [Unknown]
  - Flatulence [Unknown]
  - Depression [Unknown]
  - Pain in extremity [Unknown]
  - Weight increased [Unknown]
  - Asthenia [Unknown]

NARRATIVE: CASE EVENT DATE: 20210101
